FAERS Safety Report 7442463-3 (Version None)
Quarter: 2011Q2

REPORT INFORMATION
  Report Type: 
  Country: None (occurrence: None)
  Receive Date: 20110420
  Receipt Date: 20110411
  Transmission Date: 20111010
  Serious: Yes (Other)
  Sender: FDA-Public Use
  Company Number: 2011P1005458

PATIENT
  Age: 80 Year
  Sex: Female
  Weight: 72.5755 kg

DRUGS (10)
  1. DIOVAN [Concomitant]
  2. IMDUR [Suspect]
     Indication: HYPERTENSION
     Dosage: 300 MG;HS
     Dates: start: 20110402
  3. METOPROLOL TARTRATE [Concomitant]
  4. SIMVASTATIN [Concomitant]
  5. WARFARIN SODIUM [Suspect]
     Indication: CARDIAC FIBRILLATION
     Dosage: 4 MG;HS MONDAY THROUGH SATURDAY; PO; 12 MG;HS ON SUNDAY; PO; 6 MG;2  DAYS A WEEK;PO; 4 MG;5 DAYS A W
     Route: 048
     Dates: start: 20110405
  6. WARFARIN SODIUM [Suspect]
     Indication: HYPERTENSION
     Dosage: 4 MG;HS MONDAY THROUGH SATURDAY; PO; 12 MG;HS ON SUNDAY; PO; 6 MG;2  DAYS A WEEK;PO; 4 MG;5 DAYS A W
     Route: 048
     Dates: start: 20110405
  7. WARFARIN SODIUM [Suspect]
     Indication: CARDIAC FIBRILLATION
     Dosage: 4 MG;HS MONDAY THROUGH SATURDAY; PO; 12 MG;HS ON SUNDAY; PO; 6 MG;2  DAYS A WEEK;PO; 4 MG;5 DAYS A W
     Route: 048
     Dates: start: 20110405
  8. WARFARIN SODIUM [Suspect]
     Indication: HYPERTENSION
     Dosage: 4 MG;HS MONDAY THROUGH SATURDAY; PO; 12 MG;HS ON SUNDAY; PO; 6 MG;2  DAYS A WEEK;PO; 4 MG;5 DAYS A W
     Route: 048
     Dates: start: 20110405
  9. VITAMIN D [Concomitant]
  10. SUCCINATE [Concomitant]

REACTIONS (6)
  - HYPERTENSION [None]
  - DRUG INEFFECTIVE [None]
  - PAIN IN EXTREMITY [None]
  - BLOOD PRESSURE DECREASED [None]
  - FEELING ABNORMAL [None]
  - HEADACHE [None]
